FAERS Safety Report 6304757-4 (Version None)
Quarter: 2009Q3

REPORT INFORMATION
  Report Type: 
  Country: None (occurrence: None)
  Receive Date: 20090811
  Receipt Date: 20090804
  Transmission Date: 20100115
  Serious: Yes (Other)
  Sender: FDA-Public Use
  Company Number: B0587940A

PATIENT
  Age: 37 Year
  Sex: Male

DRUGS (1)
  1. HEPTODIN [Suspect]
     Dosage: 100MG PER DAY
     Route: 048
     Dates: start: 20020201

REACTIONS (3)
  - ABDOMINAL PAIN UPPER [None]
  - HEPATIC STEATOSIS [None]
  - PRURITUS [None]
